FAERS Safety Report 15793233 (Version 1)
Quarter: 2019Q1

REPORT INFORMATION
  Report Type: Spontaneous
  Country: US (occurrence: US)
  Receive Date: 20190107
  Receipt Date: 20190107
  Transmission Date: 20190417
  Serious: No
  Sender: FDA-Public Use
  Company Number: US-TEVA-2018-US-988407

PATIENT
  Sex: Female

DRUGS (1)
  1. ARMODAFINIL. [Suspect]
     Active Substance: ARMODAFINIL
     Dosage: 150 MILLIGRAM DAILY;

REACTIONS (5)
  - Disturbance in attention [Unknown]
  - Irritability [Unknown]
  - Product substitution issue [Unknown]
  - Restlessness [Unknown]
  - Drug ineffective [Unknown]
